FAERS Safety Report 24549651 (Version 4)
Quarter: 2025Q1

REPORT INFORMATION
  Report Type: Spontaneous
  Country: US (occurrence: US)
  Receive Date: 20241025
  Receipt Date: 20250304
  Transmission Date: 20250409
  Serious: Yes (Hospitalization)
  Sender: TAKEDA
  Company Number: US-TAKEDA-2024TUS105756

PATIENT
  Age: 86 Year
  Sex: Female
  Weight: 49 kg

DRUGS (3)
  1. ENTYVIO [Suspect]
     Active Substance: VEDOLIZUMAB
     Indication: Crohn^s disease
     Dosage: UNK UNK, Q4WEEKS
  2. ENTYVIO [Suspect]
     Active Substance: VEDOLIZUMAB
     Indication: Colitis ulcerative
     Dosage: UNK UNK, MONTHLY
     Dates: start: 202403
  3. ELIQUIS [Concomitant]
     Active Substance: APIXABAN

REACTIONS (8)
  - Illness [Not Recovered/Not Resolved]
  - Off label use [Unknown]
  - Asthenia [Not Recovered/Not Resolved]
  - Weight gain poor [Recovering/Resolving]
  - Dyschezia [Recovering/Resolving]
  - Nausea [Not Recovered/Not Resolved]
  - Weight decreased [Recovering/Resolving]
  - Back pain [Not Recovered/Not Resolved]

NARRATIVE: CASE EVENT DATE: 20250101
